FAERS Safety Report 10248698 (Version 4)
Quarter: 2014Q4

REPORT INFORMATION
  Report Type: Report from Study
  Country: DK (occurrence: None)
  Receive Date: 20140618
  Receipt Date: 20141203
  Transmission Date: 20150528
  Serious: Yes (Hospitalization)
  Sender: FDA-Public Use
  Company Number: 2014MPI00692

PATIENT
  Age: 52 Year
  Sex: Female
  Weight: 55 kg

DRUGS (4)
  1. VINBLASTINE (VINBLASTINE SULFATE) INJECTION [Suspect]
     Active Substance: VINBLASTINE
     Indication: HODGKIN^S DISEASE
     Dosage: 6 MG/M2, Q14D, INTRAVENOUS
     Route: 042
     Dates: start: 20140325, end: 20140520
  2. BRENTUXIMAB VEDOTIN [Suspect]
     Active Substance: BRENTUXIMAB VEDOTIN
     Indication: HODGKIN^S DISEASE
     Dosage: 1.2 MG/KG, Q14D, INTRAVENOUS
     Route: 042
     Dates: start: 20140325, end: 20140520
  3. DOXORUBICIN (DOXORUBICIN) INJECTION [Suspect]
     Active Substance: DOXORUBICIN
     Indication: HODGKIN^S DISEASE
     Dosage: 25 MG/M2, Q14D, INTRAVENOUS
     Route: 042
     Dates: start: 20140325, end: 20140520
  4. DACARBAZINE (DACARBAZINE) INJECTION [Suspect]
     Active Substance: DACARBAZINE
     Indication: HODGKIN^S DISEASE
     Dosage: 375 MG/M2, Q14D, INTRAVENOUS?
     Route: 042
     Dates: start: 20140325, end: 20140520

REACTIONS (5)
  - Diarrhoea [None]
  - Oesophageal candidiasis [None]
  - Abdominal pain [None]
  - Hypokalaemia [None]
  - Weight decreased [None]

NARRATIVE: CASE EVENT DATE: 20140602
